FAERS Safety Report 8557887-0 (Version None)
Quarter: 2012Q3

REPORT INFORMATION
  Report Type: 
  Country: None (occurrence: None)
  Receive Date: 20120801
  Receipt Date: 20120731
  Transmission Date: 20120928
  Serious: Yes (Hospitalization, Other)
  Sender: FDA-Public Use
  Company Number: US-009507513-1202USA04196

PATIENT

DRUGS (12)
  1. FOSAMAX [Suspect]
  2. NICOTINE [Concomitant]
     Indication: EX-TOBACCO USER
  3. CYANOCOBALAMIN [Concomitant]
     Dosage: 1 DF, QD
     Dates: start: 19920101
  4. CALCIUM (UNSPECIFIED) (+) VITAMIN D (UNSPECIFIED) [Concomitant]
     Indication: OSTEOPENIA
     Dosage: 500/200
  5. FOSAMAX [Suspect]
     Indication: OSTEOPOROSIS
     Dosage: UNK
     Dates: start: 20020101, end: 20100301
  6. FOSAMAX [Suspect]
     Dosage: 35 MG, QW
     Route: 048
     Dates: start: 20080229, end: 20100224
  7. OMEGA-3 MARINE TRIGLYCERIDES [Concomitant]
     Dosage: 1000 MG, QD
     Dates: start: 19920101
  8. ASCORBIC ACID [Concomitant]
     Dosage: 2 DF, QD
     Dates: start: 19920101
  9. FOSAMAX [Suspect]
     Indication: OSTEOPENIA
     Dosage: 35 MG, QW
     Route: 048
     Dates: start: 20040907, end: 20100228
  10. FOSAMAX [Suspect]
     Dosage: 70 MG, QW
     Route: 048
  11. CALTRATE + D [Concomitant]
     Dosage: 2 DF, QD
     Dates: start: 19920101
  12. CHANTIX [Concomitant]
     Indication: EX-TOBACCO USER
     Dosage: 1 MG, BID
     Route: 048
     Dates: start: 20070705, end: 20071005

REACTIONS (42)
  - WEIGHT DECREASED [None]
  - MUSCLE STRAIN [None]
  - LIGAMENT DISORDER [None]
  - ANAEMIA OF CHRONIC DISEASE [None]
  - SCOLIOSIS [None]
  - SPINAL OSTEOARTHRITIS [None]
  - STRESS [None]
  - MACROCYTOSIS [None]
  - HYPERLIPIDAEMIA [None]
  - YAWNING [None]
  - OSTEOARTHRITIS [None]
  - LEUKOPENIA [None]
  - LACTOSE INTOLERANCE [None]
  - HERPES SIMPLEX [None]
  - DEPRESSION [None]
  - VITAMIN D DEFICIENCY [None]
  - SYNOVIAL CYST [None]
  - ANAEMIA POSTOPERATIVE [None]
  - LUMBAR RADICULOPATHY [None]
  - HYPOTHYROIDISM [None]
  - JOINT DISLOCATION [None]
  - ARTHRITIS [None]
  - ANAEMIA [None]
  - LOW TURNOVER OSTEOPATHY [None]
  - COLONIC POLYP [None]
  - INTERVERTEBRAL DISC DISPLACEMENT [None]
  - FRUCTOSE INTOLERANCE [None]
  - UPPER RESPIRATORY TRACT INFECTION [None]
  - HYPERGLYCAEMIA [None]
  - OEDEMA PERIPHERAL [None]
  - PAIN IN EXTREMITY [None]
  - FEMUR FRACTURE [None]
  - ANXIETY [None]
  - CELLULITIS [None]
  - ONYCHOMYCOSIS [None]
  - FATIGUE [None]
  - MENISCUS LESION [None]
  - MYELODYSPLASTIC SYNDROME [None]
  - HAEMORRHOIDS [None]
  - DIARRHOEA [None]
  - MUSCULAR WEAKNESS [None]
  - PECTUS CARINATUM [None]
